FAERS Safety Report 5996452-6 (Version None)
Quarter: 2008Q4

REPORT INFORMATION
  Report Type: 
  Country: None (occurrence: None)
  Receive Date: 20081212
  Receipt Date: 20081011
  Transmission Date: 20090506
  Serious: No
  Sender: FDA-Public Use
  Company Number: US-ABBOTT-08P-163-0481398-00

PATIENT
  Sex: Female
  Weight: 90.8 kg

DRUGS (11)
  1. HUMIRA [Suspect]
     Indication: PSORIATIC ARTHROPATHY
     Route: 058
     Dates: start: 20030101, end: 20080901
  2. MELOXICAM [Concomitant]
     Indication: PSORIATIC ARTHROPATHY
     Route: 048
  3. SULFASALAZINE [Concomitant]
     Indication: PSORIATIC ARTHROPATHY
     Route: 048
  4. GABAPENTIN [Concomitant]
     Indication: INTERVERTEBRAL DISC DISORDER
     Route: 048
  5. ENALAPRIL MALEATE [Concomitant]
     Indication: HYPERTENSION
     Route: 048
  6. AMEPROZOL [Concomitant]
     Indication: GASTROOESOPHAGEAL REFLUX DISEASE
     Route: 048
  7. SERTRALINE HYDROCHLORIDE [Concomitant]
     Indication: DEPRESSION
     Route: 048
  8. ATORVASTATIN CALCIUM [Concomitant]
     Indication: BLOOD CHOLESTEROL INCREASED
     Route: 048
  9. CYCLOSPORINE [Concomitant]
     Indication: CORNEAL DEGENERATION
     Route: 047
  10. PREDNISOLONE SODIUM PHOSPHATE [Concomitant]
     Indication: CORNEAL DEGENERATION
     Dosage: 1% 2 IN 1 DAY
     Route: 047
  11. VANCOMYCIN [Concomitant]
     Indication: CORNEAL DEGENERATION
     Route: 047

REACTIONS (2)
  - ARTHRALGIA [None]
  - UPPER LIMB FRACTURE [None]
